FAERS Safety Report 9320998 (Version 2)
Quarter: 2014Q1

REPORT INFORMATION
  Report Type: Spontaneous
  Country: US (occurrence: US)
  Receive Date: 20130531
  Receipt Date: 20140311
  Transmission Date: 20141002
  Serious: No
  Sender: FDA-Public Use
  Company Number: US-PFIZER INC-2013163491

PATIENT
  Sex: Male

DRUGS (7)
  1. NORVASC [Suspect]
     Dosage: UNK
  2. ATENOLOL [Suspect]
     Dosage: UNK
  3. SEPTOCAINE [Suspect]
     Dosage: UNK
  4. MONOPRIL [Suspect]
     Dosage: UNK
  5. MAVIK [Suspect]
     Dosage: UNK
  6. DIOVAN [Suspect]
     Dosage: UNK
  7. LASIX [Suspect]
     Dosage: UNK

REACTIONS (1)
  - Drug hypersensitivity [Unknown]
